FAERS Safety Report 4873148-5 (Version None)
Quarter: 2006Q1

REPORT INFORMATION
  Report Type: 
  Country: None (occurrence: None)
  Receive Date: 20060105
  Receipt Date: 20051227
  Transmission Date: 20060701
  Serious: Yes (Death)
  Sender: FDA-Public Use
  Company Number: JP-JPN-A20053202

PATIENT
  Sex: Female

DRUGS (4)
  1. PAXIL [Suspect]
     Indication: NEUROSIS
     Route: 048
     Dates: start: 20050330, end: 20051101
  2. ANAFRANIL [Suspect]
     Route: 065
  3. LENDORMIN [Concomitant]
     Route: 048
  4. SOLANAX [Concomitant]
     Route: 048

REACTIONS (1)
  - COMPLETED SUICIDE [None]
